FAERS Safety Report 5915216-2 (Version None)
Quarter: 2008Q4

REPORT INFORMATION
  Report Type: 
  Country: None (occurrence: None)
  Receive Date: 20081010
  Receipt Date: 20081006
  Transmission Date: 20090506
  Serious: Yes (Death)
  Sender: FDA-Public Use
  Company Number: BR-MERCK-0810USA01745

PATIENT
  Age: 38 Year
  Sex: Male

DRUGS (4)
  1. DECADRON SRC [Suspect]
     Indication: ADULT T-CELL LYMPHOMA/LEUKAEMIA RECURRENT
     Route: 048
  2. SODIUM CHLORIDE [Suspect]
     Route: 065
  3. FUROSEMIDE [Suspect]
     Route: 065
  4. ZOLEDRONIC ACID [Suspect]
     Route: 065

REACTIONS (5)
  - CARDIAC FAILURE [None]
  - DRUG INEFFECTIVE [None]
  - RENAL FAILURE [None]
  - RESPIRATORY FAILURE [None]
  - SEPSIS [None]
